APPROVED DRUG PRODUCT: MONISTAT 7
Active Ingredient: MICONAZOLE NITRATE
Strength: 100MG
Dosage Form/Route: SUPPOSITORY;VAGINAL
Application: N018520 | Product #002
Applicant: MEDTECH PRODUCTS INC
Approved: Feb 15, 1991 | RLD: Yes | RS: Yes | Type: OTC